FAERS Safety Report 5106609-4 (Version None)
Quarter: 2006Q3

REPORT INFORMATION
  Report Type: 
  Country: None (occurrence: None)
  Receive Date: 20060731
  Receipt Date: 20050831
  Transmission Date: 20061208
  Serious: Yes (Other)
  Sender: FDA-Public Use
  Company Number: US-JNJFOC-20050606076

PATIENT
  Age: 10 Year
  Sex: Male
  Weight: 37.195 kg

DRUGS (5)
  1. RISPERDAL [Suspect]
     Indication: DRUG USE FOR UNKNOWN INDICATION
     Dosage: 0.5 MG, 3 IN 1 DAY
     Dates: start: 20050527
  2. ADDERAL () OBETROL [Concomitant]
  3. BENADRYL [Concomitant]
  4. CONCERTA (METHYLPHENIDATE) UNSPECIFIED [Concomitant]
  5. PREDNISONE TAB [Concomitant]

REACTIONS (2)
  - PRIAPISM [None]
  - WHITE BLOOD CELL COUNT INCREASED [None]
